FAERS Safety Report 25552351 (Version 1)
Quarter: 2025Q3

REPORT INFORMATION
  Report Type: Spontaneous
  Country: US (occurrence: US)
  Receive Date: 20250715
  Receipt Date: 20250715
  Transmission Date: 20251020
  Serious: No
  Sender: ROCHE
  Company Number: US-ROCHE-10000336103

PATIENT
  Sex: Female

DRUGS (4)
  1. ACTEMRA ACTPEN [Suspect]
     Active Substance: TOCILIZUMAB
     Indication: Systemic sclerosis pulmonary
     Dosage: STRENGTH: 162 MG/ 0.9 ML
     Route: 058
     Dates: start: 202401
  2. MYCOPHENOLATE MOFETIL [Concomitant]
     Active Substance: MYCOPHENOLATE MOFETIL
  3. MACITENTAN\TADALAFIL [Concomitant]
     Active Substance: MACITENTAN\TADALAFIL
  4. UPTRAVI [Concomitant]
     Active Substance: SELEXIPAG

REACTIONS (4)
  - Pain in jaw [Unknown]
  - Joint swelling [Unknown]
  - Peripheral swelling [Unknown]
  - Weight increased [Unknown]
